FAERS Safety Report 8961717 (Version 1)
Quarter: 2012Q4

REPORT INFORMATION
  Report Type: Report from Study
  Country: MX (occurrence: MX)
  Receive Date: 20121212
  Receipt Date: 20121212
  Transmission Date: 20130627
  Serious: Yes (Other)
  Sender: FDA-Public Use
  Company Number: MX-ROCHE-1164589

PATIENT
  Age: 66 Year
  Sex: Female
  Weight: 68 kg

DRUGS (15)
  1. BLINDED TOCILIZUMAB [Suspect]
     Indication: RHEUMATOID ARTHRITIS
     Dosage: Date of most recent dose of blinded SC prior to AE onset: 14/Dec/2011.
     Route: 058
     Dates: start: 20110706
  2. BLINDED TOCILIZUMAB [Suspect]
     Indication: RHEUMATOID ARTHRITIS
     Dosage: Date of most recent dose of blinded IV prior to AE onset: 22/Nov/2011
     Route: 042
     Dates: start: 20110706
  3. TOCILIZUMAB [Suspect]
     Indication: RHEUMATOID ARTHRITIS
     Dosage: Date of most recent dose of blinded SC prior to AE onset: 14/Nov/2012, Dose of Last open label SC ta
     Route: 058
     Dates: start: 20111227
  4. METHOTREXATE [Concomitant]
     Indication: RHEUMATOID ARTHRITIS
     Route: 048
     Dates: start: 20091214
  5. FOLIC ACID [Concomitant]
     Indication: RHEUMATOID ARTHRITIS
     Route: 048
     Dates: start: 20091214
  6. LERTUS (MEXICO) [Concomitant]
     Indication: RHEUMATOID ARTHRITIS
     Route: 048
     Dates: start: 20110310
  7. VILDAGLIPTIN [Concomitant]
     Route: 048
     Dates: start: 2009
  8. GLIMEPIRIDE [Concomitant]
     Route: 048
     Dates: start: 201008
  9. METFORMIN [Concomitant]
     Route: 048
     Dates: start: 201008
  10. OSCAL D [Concomitant]
     Route: 048
     Dates: start: 1990
  11. RIVOTRIL [Concomitant]
     Route: 048
     Dates: start: 2008
  12. LANTUS [Concomitant]
     Route: 058
     Dates: start: 201008
  13. ALISKIREN FUMARATE [Concomitant]
     Route: 048
     Dates: start: 20110712
  14. PREGABALIN [Concomitant]
     Route: 048
     Dates: start: 20111114
  15. GABAPENTIN [Concomitant]
     Indication: RHEUMATOID ARTHRITIS
     Route: 048
     Dates: start: 20120503

REACTIONS (1)
  - Intervertebral discitis [Not Recovered/Not Resolved]
